FAERS Safety Report 9725243 (Version 1)
Quarter: 2013Q4

REPORT INFORMATION
  Report Type: Spontaneous
  Country: US (occurrence: US)
  Receive Date: 20131203
  Receipt Date: 20131203
  Transmission Date: 20140711
  Serious: Yes (Other)
  Sender: FDA-Public Use
  Company Number: US-JNJFOC-20131116109

PATIENT
  Age: 80 Year
  Sex: Male
  Weight: 71.22 kg

DRUGS (3)
  1. SUDAFED PE PRESSURE PLUS PAIN PLUS MUCUS [Suspect]
     Indication: RESPIRATORY TRACT CONGESTION
     Route: 048
     Dates: start: 20131118, end: 20131119
  2. TAMSULOSIN [Interacting]
     Indication: PROSTATIC DISORDER
     Dosage: 15 YEARS
     Route: 065
  3. LORATADINE [Concomitant]
     Indication: SEASONAL ALLERGY
     Dosage: 10 YEARS
     Route: 065

REACTIONS (6)
  - Loss of consciousness [Recovering/Resolving]
  - Drug interaction [Unknown]
  - Inappropriate schedule of drug administration [Unknown]
  - Dizziness [Recovering/Resolving]
  - Product expiration date issue [Unknown]
  - Product lot number issue [Unknown]
